FAERS Safety Report 23594951 (Version 4)
Quarter: 2024Q2

REPORT INFORMATION
  Report Type: Spontaneous
  Country: DE (occurrence: DE)
  Receive Date: 20240305
  Receipt Date: 20240410
  Transmission Date: 20240716
  Serious: Yes (Life-Threatening, Hospitalization, Disabling, Other)
  Sender: FDA-Public Use
  Company Number: DE-BRISTOL-MYERS SQUIBB COMPANY-2024-034550

PATIENT
  Age: 89 Year
  Sex: Female
  Weight: 79 kg

DRUGS (13)
  1. ELIQUIS [Suspect]
     Active Substance: APIXABAN
     Indication: Atrial fibrillation
     Dates: start: 2020, end: 20240108
  2. RAMIPRIL [Concomitant]
     Active Substance: RAMIPRIL
     Indication: Product used for unknown indication
     Dosage: 1-0-1
  3. METOPROLOL [Concomitant]
     Active Substance: METOPROLOL
     Indication: Product used for unknown indication
  4. MOXONIDINE [Concomitant]
     Active Substance: MOXONIDINE
     Indication: Product used for unknown indication
  5. AMLODIPINE [Concomitant]
     Active Substance: AMLODIPINE BESYLATE
     Indication: Product used for unknown indication
  6. HYDROCHLOROTHIAZIDE [Concomitant]
     Active Substance: HYDROCHLOROTHIAZIDE
     Indication: Product used for unknown indication
  7. ASPIRIN [Concomitant]
     Active Substance: ASPIRIN
     Indication: Product used for unknown indication
  8. URAPIDIL [Concomitant]
     Active Substance: URAPIDIL
     Indication: Product used for unknown indication
  9. PANTOZOL [Concomitant]
     Active Substance: PANTOPRAZOLE SODIUM
     Indication: Product used for unknown indication
  10. PANTOZOL [Concomitant]
     Active Substance: PANTOPRAZOLE SODIUM
     Dates: start: 20200714
  11. MULTAQ [Concomitant]
     Active Substance: DRONEDARONE
     Indication: Product used for unknown indication
     Dosage: 400
  12. MULTAQ [Concomitant]
     Active Substance: DRONEDARONE
  13. EDOXABAN TOSYLATE [Concomitant]
     Active Substance: EDOXABAN TOSYLATE
     Indication: Product used for unknown indication

REACTIONS (25)
  - Gait inability [Not Recovered/Not Resolved]
  - Haemorrhage [Unknown]
  - Joint effusion [Not Recovered/Not Resolved]
  - Groin pain [Recovering/Resolving]
  - Sleep disorder [Unknown]
  - Heart failure with preserved ejection fraction [Unknown]
  - Weight decreased [Unknown]
  - Hypokalaemia [Unknown]
  - Depression [Recovered/Resolved]
  - Muscle spasms [Recovered/Resolved]
  - Gait disturbance [Unknown]
  - Muscular weakness [Unknown]
  - Lymphoedema [Unknown]
  - Atrioventricular block complete [Unknown]
  - Coronary artery disease [Unknown]
  - Bundle branch block left [Unknown]
  - Hypertensive crisis [Unknown]
  - Hypercholesterolaemia [Unknown]
  - Constipation [Unknown]
  - Visual impairment [Unknown]
  - Pleural effusion [Unknown]
  - Haematoma [Not Recovered/Not Resolved]
  - Mitral valve incompetence [Unknown]
  - Psoriasis [Unknown]
  - Osteoarthritis [Unknown]

NARRATIVE: CASE EVENT DATE: 20240209
